FAERS Safety Report 25329046 (Version 1)
Quarter: 2025Q2

REPORT INFORMATION
  Report Type: Spontaneous
  Country: US (occurrence: US)
  Receive Date: 20250519
  Receipt Date: 20250519
  Transmission Date: 20250717
  Serious: Yes (Death, Other)
  Sender: ARDELYX
  Company Number: US-ARDELYX-2025ARDX003317

PATIENT
  Age: 47 Year
  Sex: Male

DRUGS (1)
  1. XPHOZAH [Suspect]
     Active Substance: TENAPANOR HYDROCHLORIDE
     Indication: Product used for unknown indication
     Route: 065
     Dates: start: 2025, end: 202504

REACTIONS (1)
  - Cardiac arrest [Fatal]

NARRATIVE: CASE EVENT DATE: 20250401
